FAERS Safety Report 5480318-4 (Version None)
Quarter: 2007Q3

REPORT INFORMATION
  Report Type: 
  Country: None (occurrence: None)
  Receive Date: 20070913
  Receipt Date: 20061017
  Transmission Date: 20080115
  Serious: Yes (Other)
  Sender: FDA-Public Use
  Company Number: PHEH2006US05807

PATIENT
  Age: 29 Year
  Sex: Male
  Weight: 102.5 kg

DRUGS (4)
  1. DIOVAN [Suspect]
     Indication: HYPERTENSION
     Dosage: 80MG TAB, 1/2, ORAL
     Route: 048
     Dates: start: 20051001, end: 20060419
  2. MULTIVITAMINS (ASCORBIC ACID, ERGOCALCIFEROL, FOLIC ACID, NICOTINAMIDE [Concomitant]
  3. ASPIRIN [Concomitant]
  4. GINKOBIL (GINKGO BILOBA EXTRACT) [Concomitant]

REACTIONS (4)
  - DRUG INEFFECTIVE [None]
  - ERECTILE DYSFUNCTION [None]
  - HYPERTENSION [None]
  - SKIN LACERATION [None]
